FAERS Safety Report 12316963 (Version 1)
Quarter: 2016Q2

REPORT INFORMATION
  Report Type: Spontaneous
  Country: US (occurrence: None)
  Receive Date: 20160428
  Receipt Date: 20160428
  Transmission Date: 20160815
  Serious: No
  Sender: FDA-Public Use
  Company Number: None

PATIENT
  Age: 66 Year
  Sex: Male
  Weight: 165.11 kg

DRUGS (13)
  1. VENTOLIN [Concomitant]
     Active Substance: ALBUTEROL SULFATE
  2. BIPAP [Concomitant]
     Active Substance: DEVICE
  3. AMLODIPINE [Suspect]
     Active Substance: AMLODIPINE BESYLATE
     Indication: ANGINA PECTORIS
     Dosage: 90 TABLET(S) AT BEDTIME TAKEN BY MOUTH
     Route: 048
     Dates: start: 20160214, end: 20160217
  4. ASA [Concomitant]
     Active Substance: ASPIRIN
  5. XANAX [Concomitant]
     Active Substance: ALPRAZOLAM
  6. TYLENOL [Concomitant]
     Active Substance: ACETAMINOPHEN
  7. AMLODIPINE [Suspect]
     Active Substance: AMLODIPINE BESYLATE
     Indication: EXTRASYSTOLES
     Dosage: 90 TABLET(S) AT BEDTIME TAKEN BY MOUTH
     Route: 048
     Dates: start: 20160214, end: 20160217
  8. AMLODIPINE [Suspect]
     Active Substance: AMLODIPINE BESYLATE
     Indication: BLOOD PRESSURE MEASUREMENT
     Dosage: 90 TABLET(S) AT BEDTIME TAKEN BY MOUTH
     Route: 048
     Dates: start: 20160214, end: 20160217
  9. HYDROXYQUINOLONE [Concomitant]
  10. FISH OIL [Concomitant]
     Active Substance: FISH OIL
  11. VIT. D [Concomitant]
  12. TOPROL XL [Concomitant]
     Active Substance: METOPROLOL SUCCINATE
  13. NORVASC [Concomitant]
     Active Substance: AMLODIPINE BESYLATE

REACTIONS (3)
  - Angina pectoris [None]
  - Blood pressure increased [None]
  - Product substitution issue [None]

NARRATIVE: CASE EVENT DATE: 20160217
